FAERS Safety Report 6024397-4 (Version None)
Quarter: 2008Q4

REPORT INFORMATION
  Report Type: 
  Country: None (occurrence: None)
  Receive Date: 20081231
  Receipt Date: 20081219
  Transmission Date: 20090506
  Serious: Yes (Other)
  Sender: FDA-Public Use
  Company Number: FR-BAYER-200833342GPV

PATIENT
  Age: 45 Year
  Sex: Female

DRUGS (1)
  1. MIRENA [Suspect]
     Indication: ENDOMETRIAL DISORDER
     Route: 015
     Dates: start: 20071005

REACTIONS (2)
  - DYSPNOEA [None]
  - PULMONARY EMBOLISM [None]
